FAERS Safety Report 8906370 (Version 1)
Quarter: 2012Q4

REPORT INFORMATION
  Report Type: Spontaneous
  Country: US (occurrence: None)
  Receive Date: 20121109
  Receipt Date: 20121109
  Transmission Date: 20130627
  Serious: No
  Sender: FDA-Public Use
  Company Number: None

PATIENT
  Age: 88 Year
  Sex: Male
  Weight: 74.84 kg

DRUGS (1)
  1. VESICARE [Suspect]
     Indication: OVERACTIVE BLADDER
     Route: 048
     Dates: start: 201201

REACTIONS (2)
  - Constipation [None]
  - Vision blurred [None]
